FAERS Safety Report 5109553-1 (Version None)
Quarter: 2006Q3

REPORT INFORMATION
  Report Type: 
  Country: None (occurrence: None)
  Receive Date: 20060918
  Receipt Date: 20060830
  Transmission Date: 20061208
  Serious: Yes (Hospitalization)
  Sender: FDA-Public Use
  Company Number: MX200609000023

PATIENT
  Age: 6 Year
  Sex: Male

DRUGS (3)
  1. STRATTERA [Suspect]
     Dates: start: 20051001
  2. MEBENDAZOLE [Concomitant]
  3. QUINIMAX (CINCHONIDINE, CINCHONINE, QUINIDINE, QUININE) [Concomitant]

REACTIONS (1)
  - SHOCK [None]
